FAERS Safety Report 5190371-3 (Version None)
Quarter: 2006Q4

REPORT INFORMATION
  Report Type: 
  Country: None (occurrence: None)
  Receive Date: 20061222
  Receipt Date: 20061215
  Transmission Date: 20070319
  Serious: Yes (Death, Hospitalization)
  Sender: FDA-Public Use
  Company Number: JP-ELI_LILLY_AND_COMPANY-JP200612003760

PATIENT
  Age: 79 Year
  Sex: Female
  Weight: 53.5 kg

DRUGS (5)
  1. RALOXIFENE HCL [Suspect]
     Indication: OSTEOPOROSIS POSTMENOPAUSAL
     Dosage: 60 MG, DAILY (1/D)
     Route: 048
     Dates: start: 20050114, end: 20051105
  2. ALFACALCIDOL [Concomitant]
     Indication: OSTEOPOROSIS POSTMENOPAUSAL
     Dosage: 1 UG, DAILY (1/D)
     Route: 048
     Dates: start: 20050315, end: 20051102
  3. VOLTAREN - SLOW RELEASE ^NOVARTIS^ [Concomitant]
     Indication: OSTEOPOROSIS POSTMENOPAUSAL
     Dosage: 37.5 MG, DAILY (1/D)
     Route: 048
     Dates: start: 20050928, end: 20051102
  4. GASLON [Concomitant]
     Dosage: 4 MG, DAILY (1/D)
     Route: 048
     Dates: end: 20051102
  5. INDOMETHACIN [Concomitant]
     Indication: OSTEOPOROSIS POSTMENOPAUSAL
     Dosage: 50 MG, DAILY (1/D)
     Route: 054
     Dates: start: 20051015, end: 20051102

REACTIONS (1)
  - METASTATIC NEOPLASM [None]
